FAERS Safety Report 21950576 (Version 1)
Quarter: 2023Q1

REPORT INFORMATION
  Report Type: Spontaneous
  Country: US (occurrence: US)
  Receive Date: 20230203
  Receipt Date: 20230203
  Transmission Date: 20230417
  Serious: No
  Sender: FDA-Public Use
  Company Number: US-BAYER-2023P007912

PATIENT
  Sex: Female

DRUGS (3)
  1. MIRENA [Suspect]
     Active Substance: LEVONORGESTREL
     Indication: Thalassaemia sickle cell
     Dosage: 20?G/DAY
     Route: 015
     Dates: start: 201804
  2. MIRENA [Suspect]
     Active Substance: LEVONORGESTREL
     Indication: Contraception
  3. MIRENA [Suspect]
     Active Substance: LEVONORGESTREL
     Indication: Heavy menstrual bleeding

REACTIONS (1)
  - Adverse event [None]
